FAERS Safety Report 20008204 (Version 4)
Quarter: 2022Q4

REPORT INFORMATION
  Report Type: Spontaneous
  Country: US (occurrence: US)
  Receive Date: 20211028
  Receipt Date: 20221124
  Transmission Date: 20230112
  Serious: Yes (Other)
  Sender: FDA-Public Use
  Company Number: US-PFIZER INC-202101459417

PATIENT
  Age: 68 Year
  Sex: Female

DRUGS (2)
  1. XELJANZ [Suspect]
     Active Substance: TOFACITINIB CITRATE
     Dosage: UNK
  2. XELJANZ [Suspect]
     Active Substance: TOFACITINIB CITRATE
     Dosage: 5 MG, 3X/DAY (5MG THREE TIMES A DAY)

REACTIONS (6)
  - Dementia [Unknown]
  - Parkinson^s disease [Unknown]
  - Drug ineffective [Unknown]
  - Intentional product misuse [Unknown]
  - Arthritis [Unknown]
  - Spondylitis [Unknown]
